FAERS Safety Report 20421830 (Version 3)
Quarter: 2022Q1

REPORT INFORMATION
  Report Type: Report from Study
  Country: IT (occurrence: None)
  Receive Date: 20220203
  Receipt Date: 20220228
  Transmission Date: 20220423
  Serious: Yes (Death, Hospitalization)
  Sender: FDA-Public Use
  Company Number: IT-ROCHE-3009417

PATIENT
  Age: 62 Year
  Sex: Male
  Weight: 92 kg

DRUGS (7)
  1. TIRAGOLUMAB [Suspect]
     Active Substance: TIRAGOLUMAB
     Indication: Non-small cell lung cancer
     Dosage: ON 20/JAN/2022, HE RECEIVED MOST DOSE OF TIRAGOLUMAB. 600MG
     Route: 042
     Dates: start: 20211021
  2. ATEZOLIZUMAB [Suspect]
     Active Substance: ATEZOLIZUMAB
     Indication: Non-small cell lung cancer
     Dosage: ON 20/JAN/2022, HE RECEIVED MOST DOSE OF ATEZOLIZUMAB .
     Route: 041
     Dates: start: 20211021
  3. ATEZOLIZUMAB [Suspect]
     Active Substance: ATEZOLIZUMAB
     Indication: Non-small cell lung cancer
     Dosage: ON 20/JAN/2022, HE RECEIVED MOST DOSE OF PEMBROLIZUMAB.
     Route: 041
     Dates: start: 20211021
  4. CARBOPLATIN [Suspect]
     Active Substance: CARBOPLATIN
     Indication: Non-small cell lung cancer
     Dosage: ON 20/JAN/2022, HE RECEIVED MOST RECENT DOSE OF CARBOPLATIN?HE RECEIVED 644 MG LAST DOSE OF CARBOPLA
     Route: 042
     Dates: start: 20211021
  5. PEMETREXED [Suspect]
     Active Substance: PEMETREXED
     Indication: Non-small cell lung cancer
     Dosage: ON 20/JAN/2022, HE RECEIVED MOST RECENT DOSE OF PEMETREXED?HE RECEIVED 1042.1 MG LAST DOSE OF PEMETR
     Route: 042
     Dates: start: 20211021
  6. KEPPRA [Concomitant]
     Active Substance: LEVETIRACETAM
     Route: 048
     Dates: start: 20211019
  7. FOLIC ACID [Concomitant]
     Active Substance: FOLIC ACID
     Dates: start: 20211019

REACTIONS (1)
  - Stevens-Johnson syndrome [Fatal]

NARRATIVE: CASE EVENT DATE: 20220121
